FAERS Safety Report 7069789-X (Version None)
Quarter: 2010Q4

REPORT INFORMATION
  Report Type: 
  Country: None (occurrence: None)
  Receive Date: 20101028
  Receipt Date: 20100628
  Transmission Date: 20110411
  Serious: No
  Sender: FDA-Public Use
  Company Number: US-WYE-H15669510

PATIENT
  Age: 46 Year
  Sex: Female
  Weight: 90.35 kg

DRUGS (1)
  1. ADVIL [Suspect]
     Indication: HEADACHE
     Dosage: 2 TABLETS AS NEEDED
     Route: 048
     Dates: start: 20080101, end: 20100603

REACTIONS (1)
  - DRUG INEFFECTIVE [None]
